FAERS Safety Report 4578264-3 (Version None)
Quarter: 2005Q1

REPORT INFORMATION
  Report Type: 
  Country: None (occurrence: None)
  Receive Date: 20050209
  Receipt Date: 20050201
  Transmission Date: 20050727
  Serious: Yes (Life-Threatening)
  Sender: FDA-Public Use
  Company Number: 2005US000162

PATIENT
  Age: 50 Year
  Sex: Female

DRUGS (1)
  1. ADENOSCAN [Suspect]
     Indication: SCAN MYOCARDIAL PERFUSION
     Dosage: INTRAVENOUS
     Route: 042

REACTIONS (5)
  - BODY TEMPERATURE INCREASED [None]
  - HAEMOPTYSIS [None]
  - LUNG DISORDER [None]
  - NERVOUS SYSTEM DISORDER [None]
  - PULMONARY OEDEMA [None]
